FAERS Safety Report 14146213 (Version 2)
Quarter: 2018Q1

REPORT INFORMATION
  Report Type: Spontaneous
  Country: US (occurrence: US)
  Receive Date: 20171031
  Receipt Date: 20180108
  Transmission Date: 20180508
  Serious: No
  Sender: FDA-Public Use
  Company Number: US-GLAXOSMITHKLINE-US2017165597

PATIENT
  Sex: Female

DRUGS (8)
  1. CELLCEPT [Concomitant]
     Active Substance: MYCOPHENOLATE MOFETIL\MYCOPHENOLATE MOFETIL HYDROCHLORIDE
  2. ENALAPRIL [Concomitant]
     Active Substance: ENALAPRIL
  3. PREDNISONE. [Concomitant]
     Active Substance: PREDNISONE
  4. NIFEDIPINE. [Concomitant]
     Active Substance: NIFEDIPINE
  5. SPIRONOLACTONE. [Concomitant]
     Active Substance: SPIRONOLACTONE
  6. BUPROPION. [Concomitant]
     Active Substance: BUPROPION
  7. BENLYSTA [Suspect]
     Active Substance: BELIMUMAB
     Indication: SYSTEMIC LUPUS ERYTHEMATOSUS
     Dosage: 200 MG, WE
     Route: 042
     Dates: start: 20150928
  8. OXYCODONE [Concomitant]
     Active Substance: OXYCODONE

REACTIONS (7)
  - Myalgia [Unknown]
  - Drug dose omission [Unknown]
  - Product storage error [Unknown]
  - Product substitution issue [Unknown]
  - Fatigue [Unknown]
  - Malaise [Unknown]
  - Arthralgia [Unknown]
